FAERS Safety Report 4781578-5 (Version None)
Quarter: 2005Q3

REPORT INFORMATION
  Report Type: 
  Country: None (occurrence: None)
  Receive Date: 20050927
  Receipt Date: 20050920
  Transmission Date: 20060218
  Serious: Yes (Hospitalization)
  Sender: FDA-Public Use
  Company Number: 2005BI017436

PATIENT
  Age: 51 Year
  Sex: Female

DRUGS (1)
  1. AVONEX [Suspect]
     Indication: MULTIPLE SCLEROSIS
     Dosage: 30 UG; QW; IM
     Route: 030
     Dates: start: 20030601

REACTIONS (6)
  - ABNORMAL FAECES [None]
  - ANAL FISTULA EXCISION [None]
  - ASTHENIA [None]
  - COLITIS ULCERATIVE [None]
  - DIARRHOEA [None]
  - PYREXIA [None]
